FAERS Safety Report 4283562-7 (Version None)
Quarter: 2004Q1

REPORT INFORMATION
  Report Type: 
  Country: None (occurrence: None)
  Receive Date: 20040202
  Receipt Date: 20030725
  Transmission Date: 20041129
  Serious: Yes (Other)
  Sender: FDA-Public Use
  Company Number: US-GLAXOSMITHKLINE-A0418187A

PATIENT
  Age: 61 Year
  Sex: Male

DRUGS (1)
  1. PAXIL CR [Suspect]
     Indication: DEPRESSION
     Dosage: 25MG PER DAY
     Route: 048
     Dates: start: 20020801

REACTIONS (4)
  - ANORGASMIA [None]
  - EJACULATION FAILURE [None]
  - LIBIDO DECREASED [None]
  - SENSORY LOSS [None]
